FAERS Safety Report 9714686 (Version 1)
Quarter: 2013Q4

REPORT INFORMATION
  Report Type: Report from Study
  Country: US (occurrence: US)
  Receive Date: 20131126
  Receipt Date: 20131126
  Transmission Date: 20140711
  Serious: Yes (Other)
  Sender: FDA-Public Use
  Company Number: US-BAXTER-2013BAX046467

PATIENT
  Sex: Female

DRUGS (4)
  1. CYCLOPHOSPHAMIDE FOR INJECTION, USP [Suspect]
     Indication: BREAST CANCER
     Route: 065
  2. DOCETAXEL [Suspect]
     Indication: BREAST CANCER
     Route: 065
  3. EPIRUBICIN [Suspect]
     Indication: BREAST CANCER
     Route: 065
  4. FILGRASTIM [Concomitant]
     Indication: BREAST CANCER
     Route: 065

REACTIONS (1)
  - Breast cancer [Unknown]
